FAERS Safety Report 12201478 (Version 1)
Quarter: 2016Q1

REPORT INFORMATION
  Report Type: Spontaneous
  Country: US (occurrence: US)
  Receive Date: 20160322
  Receipt Date: 20160322
  Transmission Date: 20160526
  Serious: Yes (Other)
  Sender: FDA-Public Use
  Company Number: US-SA-2015SA146221

PATIENT
  Age: 74 Year
  Sex: Female

DRUGS (1)
  1. NASACORT ALLERGY 24HR [Suspect]
     Active Substance: TRIAMCINOLONE ACETONIDE
     Dosage: DOSE- 1 SPRAY EACH NARES?START DATE: ABOUT  1 YEAR AGO
     Route: 045
     Dates: end: 20150920

REACTIONS (3)
  - Vision blurred [Not Recovered/Not Resolved]
  - Cataract [Unknown]
  - Headache [Recovering/Resolving]

NARRATIVE: CASE EVENT DATE: 201507
